FAERS Safety Report 13533601 (Version 1)
Quarter: 2017Q2

REPORT INFORMATION
  Report Type: Spontaneous
  Country: NL (occurrence: NL)
  Receive Date: 20170510
  Receipt Date: 20170510
  Transmission Date: 20170830
  Serious: Yes (Other)
  Sender: FDA-Public Use
  Company Number: NL-PFIZER INC-2017198560

PATIENT
  Age: 41 Year
  Sex: Female

DRUGS (2)
  1. CLINDAMYCIN HCL [Suspect]
     Active Substance: CLINDAMYCIN HYDROCHLORIDE
     Indication: HIDRADENITIS
     Dosage: 300 MG, 2X/DAY
     Route: 048
     Dates: start: 20161220, end: 20170426
  2. RIFAMPICINE [Concomitant]
     Active Substance: RIFAMPIN
     Route: 048
     Dates: start: 20161220, end: 20170117

REACTIONS (2)
  - Dental caries [Not Recovered/Not Resolved]
  - Product use in unapproved indication [Unknown]

NARRATIVE: CASE EVENT DATE: 2017
